FAERS Safety Report 6549853-1 (Version None)
Quarter: 2010Q1

REPORT INFORMATION
  Report Type: 
  Country: None (occurrence: None)
  Receive Date: 20100125
  Receipt Date: 20100119
  Transmission Date: 20100710
  Serious: Yes (Death, Hospitalization)
  Sender: FDA-Public Use
  Company Number: BR-ROCHE-678197

PATIENT
  Sex: Male
  Weight: 70 kg

DRUGS (13)
  1. TOCILIZUMAB [Suspect]
     Route: 042
     Dates: start: 20090614
  2. TOCILIZUMAB [Suspect]
     Dosage: FOMR: INFUSION
     Route: 042
     Dates: start: 20091002, end: 20100104
  3. RITUXIMAB [Suspect]
     Route: 065
     Dates: end: 20090401
  4. ARAVA [Suspect]
     Route: 065
  5. HUMIRA [Suspect]
     Route: 065
  6. PREDNISONE TAB [Concomitant]
  7. PREDNISONE TAB [Concomitant]
  8. OSCAL D [Concomitant]
     Indication: OSTEOPOROSIS PROPHYLAXIS
  9. CITALOPRAM [Concomitant]
     Indication: ANXIETY
  10. CLONAZEPAM [Concomitant]
     Indication: ANXIETY
  11. METHOTREXATE [Concomitant]
  12. CHLOROQUINE PHOSPHATE [Concomitant]
  13. TYLEX [Concomitant]
     Indication: PAIN

REACTIONS (7)
  - DEHYDRATION [None]
  - DIARRHOEA [None]
  - GENERALISED OEDEMA [None]
  - MEGACOLON [None]
  - MULTI-ORGAN FAILURE [None]
  - PAIN [None]
  - PYREXIA [None]
